FAERS Safety Report 15705342 (Version 1)
Quarter: 2018Q4

REPORT INFORMATION
  Report Type: Spontaneous
  Country: US (occurrence: US)
  Receive Date: 20181210
  Receipt Date: 20181210
  Transmission Date: 20190205
  Serious: Yes (Death, Life-Threatening, Other)
  Sender: FDA-Public Use
  Company Number: US-PFIZER INC-2018503732

PATIENT
  Age: 12 Year
  Sex: Female

DRUGS (2)
  1. ZITHROMAX [Suspect]
     Active Substance: AZITHROMYCIN DIHYDRATE
     Indication: SINUSITIS
     Dosage: UNK
  2. ZITHROMAX [Suspect]
     Active Substance: AZITHROMYCIN DIHYDRATE
     Indication: OTITIS MEDIA

REACTIONS (8)
  - Atrioventricular block complete [Unknown]
  - Electrocardiogram QT prolonged [Unknown]
  - Syncope [Unknown]
  - Nausea [Unknown]
  - Dizziness [Unknown]
  - Ventricular fibrillation [Fatal]
  - Palpitations [Unknown]
  - Torsade de pointes [Not Recovered/Not Resolved]
